FAERS Safety Report 10044489 (Version 2)
Quarter: 2014Q2

REPORT INFORMATION
  Report Type: Spontaneous
  Country: US (occurrence: US)
  Receive Date: 20140328
  Receipt Date: 20140404
  Transmission Date: 20141212
  Serious: No
  Sender: FDA-Public Use
  Company Number: US-PFIZER INC-2014088553

PATIENT
  Age: 72 Year
  Sex: Female
  Weight: 47.62 kg

DRUGS (5)
  1. CELEBREX [Suspect]
     Indication: PAIN
     Dosage: 200 MG, DAILY
     Dates: start: 20140325, end: 2014
  2. CELEBREX [Suspect]
     Indication: INFLAMMATION
  3. SIMVASTATIN [Concomitant]
     Indication: BLOOD CHOLESTEROL INCREASED
     Dosage: UNK
  4. ASPIRIN ^BAYER^ [Concomitant]
     Indication: PAIN
     Dosage: 325 MG, 6-7 TIMES A DAY
     Dates: end: 20140324
  5. CLONAZEPAM [Concomitant]
     Dosage: UNK

REACTIONS (2)
  - Pain [Unknown]
  - Gait disturbance [Unknown]
